FAERS Safety Report 9034587 (Version 1)
Quarter: 2013Q1

REPORT INFORMATION
  Report Type: Spontaneous
  Country: GB (occurrence: None)
  Receive Date: 20130115
  Receipt Date: 20130115
  Transmission Date: 20140127
  Serious: Yes (Death, Other)
  Sender: FDA-Public Use
  Company Number: GB-ACCORD-015903

PATIENT
  Age: 67 Year
  Sex: Male
  Weight: 69 kg

DRUGS (12)
  1. DOCETAXEL [Suspect]
     Indication: LUNG ADENOCARCINOMA METASTATIC
     Route: 041
     Dates: start: 20111020, end: 20111020
  2. BEVACIZUMAB [Suspect]
     Indication: LUNG ADENOCARCINOMA METASTATIC
     Dosage: 15.00 MG/KG-1.00 / INTRAVENOUS DRIP TIME PAR-3.0 WEEKS
     Route: 041
     Dates: start: 20110928, end: 20111020
  3. MUCOSTA (MUCOSTA) [Concomitant]
  4. ZYLORIC (ZYLORIC) [Concomitant]
  5. MUCODYNE (MUCODYNE) [Concomitant]
  6. CARBOPLATIN (CARBOPLATIN) [Concomitant]
  7. PROMAC (PROMAC) [Concomitant]
  8. GLIMICRON (GLIMICRON) [Concomitant]
  9. DEPASS (DEPAS) [Concomitant]
  10. LOXONIN (LOXONIN) [Concomitant]
  11. METFORMIN (METFORMIN) [Concomitant]
  12. PEMETREXED (PEMETREXED) [Concomitant]

REACTIONS (12)
  - Infection [None]
  - Interstitial lung disease [None]
  - Acute respiratory distress syndrome [None]
  - Musculoskeletal pain [None]
  - Dental caries [None]
  - Red blood cell count decreased [None]
  - Blood lactate dehydrogenase increased [None]
  - Pain in extremity [None]
  - Intestinal perforation [None]
  - Condition aggravated [None]
  - Blood urea increased [None]
  - Depressed level of consciousness [None]
